FAERS Safety Report 8366463-4 (Version None)
Quarter: 2012Q2

REPORT INFORMATION
  Report Type: 
  Country: None (occurrence: None)
  Receive Date: 20120517
  Receipt Date: 20120510
  Transmission Date: 20120825
  Serious: Yes (Other)
  Sender: FDA-Public Use
  Company Number: KR-BAYER-2012-046041

PATIENT
  Age: 36 Year
  Sex: Female

DRUGS (1)
  1. ASPIRIN [Suspect]
     Route: 065

REACTIONS (1)
  - ANGIOEDEMA [None]
